FAERS Safety Report 6165201-3 (Version None)
Quarter: 2009Q2

REPORT INFORMATION
  Report Type: 
  Country: None (occurrence: None)
  Receive Date: 20090423
  Receipt Date: 20090413
  Transmission Date: 20091009
  Serious: Yes (Hospitalization, Other)
  Sender: FDA-Public Use
  Company Number: AT-PURDUE-DEU_2009_0005187

PATIENT
  Age: 31 Year
  Sex: Female

DRUGS (1)
  1. MORPHINE [Suspect]
     Indication: DRUG ABUSE
     Route: 042
     Dates: start: 20090412

REACTIONS (2)
  - DRUG ABUSE [None]
  - LOSS OF CONSCIOUSNESS [None]
